FAERS Safety Report 7036071-6 (Version None)
Quarter: 2010Q4

REPORT INFORMATION
  Report Type: 
  Country: None (occurrence: None)
  Receive Date: 20101008
  Receipt Date: 20100907
  Transmission Date: 20110411
  Serious: Yes (Other)
  Sender: FDA-Public Use
  Company Number: PHHY2010PT65132

PATIENT
  Age: 64 Year
  Sex: Female
  Weight: 78 kg

DRUGS (10)
  1. MYFORTIC [Suspect]
     Indication: RENAL TRANSPLANT
     Dosage: 360 MG, BID
     Dates: start: 20070101
  2. TACROLIMUS [Suspect]
     Dosage: 2 MG, TWICE DAILY
     Dates: start: 20070101
  3. METICORTEN [Suspect]
     Dosage: 5 MG DAILY
     Dates: start: 20070101
  4. LASIX [Concomitant]
     Dosage: 2X40 MG TWICE DAILY
  5. NORVASC [Concomitant]
     Dosage: 5MG DAILY
  6. PANTOC [Concomitant]
     Dosage: 20 MG DAILY
  7. FURADANTINE MC [Concomitant]
     Dosage: 1 TABLET DAILY
  8. EPOGEN [Concomitant]
     Dosage: 6.000 U EVERY TWO WEEKS
  9. EUCREAS [Concomitant]
     Dosage: 50MG/1000MG 2 BID
     Dates: start: 20090501
  10. GLICLAZIDE [Concomitant]
     Dosage: 30 MG DAILY
     Dates: start: 20090501

REACTIONS (3)
  - DILATATION VENTRICULAR [None]
  - LEFT VENTRICULAR HYPERTROPHY [None]
  - TYPE 2 DIABETES MELLITUS [None]
